FAERS Safety Report 21444772 (Version 1)
Quarter: 2022Q4

REPORT INFORMATION
  Report Type: Other
  Country: FR (occurrence: FR)
  Receive Date: 20221012
  Receipt Date: 20221012
  Transmission Date: 20230112
  Serious: Yes (Hospitalization, Other)
  Sender: FDA-Public Use
  Company Number: FR-ASTELLAS-2022US035676

PATIENT
  Age: 64 Year
  Sex: Male

DRUGS (14)
  1. ENZALUTAMIDE [Suspect]
     Active Substance: ENZALUTAMIDE
     Indication: Prostate cancer
     Dosage: 160 MG, ONCE DAILY (SECOND HORMONAL THERAPY)
     Route: 048
     Dates: start: 20220217, end: 20220401
  2. ENZALUTAMIDE [Suspect]
     Active Substance: ENZALUTAMIDE
     Indication: Metastases to bone
  3. DEGARELIX [Concomitant]
     Active Substance: DEGARELIX
     Indication: Prostate cancer
     Dosage: 240 MG, UNKNOWN FREQ. (INITIAL DOSE)
     Route: 058
     Dates: start: 20220204
  4. DEGARELIX [Concomitant]
     Active Substance: DEGARELIX
     Indication: Metastases to bone
     Dosage: 80 MG, MONTHLY (1 INJECTION)
     Route: 058
  5. DEGARELIX [Concomitant]
     Active Substance: DEGARELIX
     Dosage: UNK UNK, UNKNOWN FREQ. (MAINTENANCE DOSE)
     Route: 058
     Dates: start: 20220304
  6. DEGARELIX [Concomitant]
     Active Substance: DEGARELIX
     Dosage: UNK UNK, UNKNOWN FREQ. (MAINTENANCE DOSE)
     Route: 058
     Dates: start: 20220404
  7. DAFALGAN CODEINE [Concomitant]
     Active Substance: ACETAMINOPHEN\CODEINE PHOSPHATE
     Indication: Pain
     Dosage: UNK UNK, UNKNOWN FREQ.
     Route: 065
  8. ACETAMINOPHEN [Concomitant]
     Active Substance: ACETAMINOPHEN
     Indication: Pain
     Dosage: UNK UNK, UNKNOWN FREQ.
     Route: 065
  9. ESOMEPRAZOLE [Concomitant]
     Active Substance: ESOMEPRAZOLE
     Indication: Gastrooesophageal reflux disease
     Dosage: UNK UNK, AS NEEDED
     Route: 065
  10. RAMIPRIL [Concomitant]
     Active Substance: RAMIPRIL
     Indication: Hypertension
     Dosage: UNK UNK, UNKNOWN FREQ.
     Route: 065
  11. ALFUZOSIN [Concomitant]
     Active Substance: ALFUZOSIN
     Indication: Benign prostatic hyperplasia
     Dosage: UNK UNK, UNKNOWN FREQ.
     Route: 065
  12. AMOXICILLIN [Concomitant]
     Active Substance: AMOXICILLIN
     Indication: Tooth infection
     Dosage: 1 G, TWICE DAILY (FOR 8 DAYS)
     Route: 065
  13. AMOXICILLIN [Concomitant]
     Active Substance: AMOXICILLIN
     Indication: Dental disorder prophylaxis
     Dosage: UNK UNK, UNKNOWN FREQ. (RE-INITIATAION OF TREATMENT FOR 7 DAYS)
     Route: 065
  14. ACETAMINOPHEN [Concomitant]
     Active Substance: ACETAMINOPHEN
     Indication: Product used for unknown indication
     Dosage: UNK UNK, UNKNOWN FREQ.
     Route: 065

REACTIONS (1)
  - Hepatic cytolysis [Recovered/Resolved]

NARRATIVE: CASE EVENT DATE: 20220401
